FAERS Safety Report 16592109 (Version 1)
Quarter: 2019Q3

REPORT INFORMATION
  Report Type: Spontaneous
  Country: FR (occurrence: FR)
  Receive Date: 20190718
  Receipt Date: 20190718
  Transmission Date: 20191004
  Serious: Yes (Hospitalization)
  Sender: FDA-Public Use
  Company Number: FR-TEVA-2019-FR-1078367

PATIENT
  Age: 18 Year
  Sex: Female
  Weight: 78 kg

DRUGS (1)
  1. KETOPROFENE [Suspect]
     Active Substance: KETOPROFEN
     Indication: ARTHRALGIA
     Route: 048
     Dates: start: 20190415, end: 20190415

REACTIONS (2)
  - Tongue oedema [Recovered/Resolved]
  - Lip oedema [Recovering/Resolving]

NARRATIVE: CASE EVENT DATE: 20190415
